FAERS Safety Report 20335677 (Version 1)
Quarter: 2022Q1

REPORT INFORMATION
  Report Type: Spontaneous
  Country: US (occurrence: None)
  Receive Date: 20220113
  Receipt Date: 20220113
  Transmission Date: 20220424
  Serious: No
  Sender: FDA-Public Use
  Company Number: None

PATIENT
  Age: 25 Year
  Sex: Female
  Weight: 96.75 kg

DRUGS (2)
  1. BAMLANIVIMAB [Suspect]
     Active Substance: BAMLANIVIMAB
     Indication: Coronavirus test positive
     Dosage: OTHER FREQUENCY : ONE TIME;?
     Route: 041
     Dates: start: 20211229, end: 20211229
  2. ETESEVIMAB [Suspect]
     Active Substance: ETESEVIMAB
     Indication: Coronavirus test positive
     Dosage: OTHER FREQUENCY : ONE TIME;?
     Route: 041
     Dates: start: 20211229, end: 20211229

REACTIONS (8)
  - Infusion related reaction [None]
  - Dizziness [None]
  - Flushing [None]
  - Hyperhidrosis [None]
  - Feeling hot [None]
  - Cold sweat [None]
  - Angina pectoris [None]
  - Dyspnoea [None]

NARRATIVE: CASE EVENT DATE: 20211229
